FAERS Safety Report 8472018-3 (Version None)
Quarter: 2012Q2

REPORT INFORMATION
  Report Type: 
  Country: None (occurrence: None)
  Receive Date: 20120627
  Receipt Date: 20120621
  Transmission Date: 20120825
  Serious: Yes (Other)
  Sender: FDA-Public Use
  Company Number: JP-JNJFOC-20120612041

PATIENT
  Sex: Male
  Weight: 70 kg

DRUGS (4)
  1. STELARA [Suspect]
     Route: 058
     Dates: start: 20110928
  2. STELARA [Suspect]
     Route: 058
     Dates: start: 20120118
  3. STELARA [Suspect]
     Indication: PSORIASIS
     Route: 058
     Dates: start: 20111026
  4. STELARA [Suspect]
     Route: 058
     Dates: start: 20120411

REACTIONS (1)
  - LIVER FUNCTION TEST ABNORMAL [None]
